FAERS Safety Report 6219947-9 (Version None)
Quarter: 2009Q2

REPORT INFORMATION
  Report Type: 
  Country: None (occurrence: None)
  Receive Date: 20090609
  Receipt Date: 20090309
  Transmission Date: 20091009
  Serious: No
  Sender: FDA-Public Use
  Company Number: US-BAYER-200917236NA

PATIENT
  Age: 33 Year
  Sex: Female
  Weight: 70 kg

DRUGS (1)
  1. ULTRAVIST 150 [Suspect]
     Indication: COMPUTERISED TOMOGRAM ABDOMEN
     Dosage: 1.8 ML/SEC INTO UNSPECIFIED SITE
     Route: 042
     Dates: start: 20090306, end: 20090306

REACTIONS (2)
  - EYE PRURITUS [None]
  - URTICARIA [None]
